FAERS Safety Report 7451507-4 (Version None)
Quarter: 2011Q2

REPORT INFORMATION
  Report Type: 
  Country: None (occurrence: None)
  Receive Date: 20110502
  Receipt Date: 20110426
  Transmission Date: 20111010
  Serious: Yes (Other)
  Sender: FDA-Public Use
  Company Number: US-EISAI INC-E2020-09059-SPO-US

PATIENT
  Sex: Female

DRUGS (2)
  1. ANTIDEPRESSANT MEDICATION [Concomitant]
  2. ARICEPT [Suspect]
     Indication: DEMENTIA ALZHEIMER'S TYPE
     Dosage: UNKNOWN
     Route: 048
     Dates: start: 20100101

REACTIONS (3)
  - WEIGHT DECREASED [None]
  - DECREASED APPETITE [None]
  - COGNITIVE DISORDER [None]
